FAERS Safety Report 4482142-8 (Version None)
Quarter: 2004Q4

REPORT INFORMATION
  Report Type: 
  Country: None (occurrence: None)
  Receive Date: 20041020
  Receipt Date: 20041008
  Transmission Date: 20050328
  Serious: Yes (Life-Threatening, Hospitalization)
  Sender: FDA-Public Use
  Company Number: RS004755-J

PATIENT
  Age: 76 Year
  Sex: Female

DRUGS (5)
  1. RABEPRAZOLE SODIUM [Suspect]
     Dosage: 10 MG, 1 IN 1 D, ORAL
     Route: 048
     Dates: start: 20040922, end: 20041006
  2. PREDNISOLONE [Concomitant]
  3. AMOXAPINE [Concomitant]
  4. DOGMATYL (SULPIRIDE) [Concomitant]
  5. AMOBAN (ZOPICLONE) [Concomitant]

REACTIONS (1)
  - PLATELET COUNT DECREASED [None]
